FAERS Safety Report 8988913 (Version 1)
Quarter: 2012Q4

REPORT INFORMATION
  Report Type: Spontaneous
  Country: US (occurrence: None)
  Receive Date: 20121220
  Receipt Date: 20121220
  Transmission Date: 20130627
  Serious: Yes (Other)
  Sender: FDA-Public Use
  Company Number: IMP_06119_2012

PATIENT
  Age: 70 Year
  Sex: Female

DRUGS (1)
  1. MINOCYCLINE [Suspect]
     Indication: INFECTION
     Route: 048

REACTIONS (10)
  - Pyrexia [None]
  - C-reactive protein increased [None]
  - Peroneal nerve palsy [None]
  - Melaena [None]
  - Weight decreased [None]
  - Mononeuropathy multiplex [None]
  - Arterial occlusive disease [None]
  - Vasculitis [None]
  - Neuropathy peripheral [None]
  - Antinuclear antibody positive [None]
